FAERS Safety Report 11913585 (Version 2)
Quarter: 2016Q1

REPORT INFORMATION
  Report Type: Spontaneous
  Country: JP (occurrence: JP)
  Receive Date: 20160113
  Receipt Date: 20160210
  Transmission Date: 20160526
  Serious: Yes (Life-Threatening, Hospitalization)
  Sender: FDA-Public Use
  Company Number: JP-VIFOR (INTERNATIONAL) INC.-VIT-2015-03799

PATIENT
  Age: 75 Year
  Sex: Male

DRUGS (10)
  1. EXJADE [Concomitant]
     Active Substance: DEFERASIROX
     Indication: PROPHYLAXIS
     Route: 048
     Dates: start: 20131119
  2. MIRCERA [Suspect]
     Active Substance: METHOXY POLYETHYLENE GLYCOL-EPOETIN BETA
     Route: 058
     Dates: start: 20140708, end: 20151029
  3. TRAZENTA [Concomitant]
     Active Substance: LINAGLIPTIN
     Indication: PROPHYLAXIS
     Route: 048
     Dates: start: 20140318, end: 20151119
  4. MIRCERA [Suspect]
     Active Substance: METHOXY POLYETHYLENE GLYCOL-EPOETIN BETA
     Route: 058
     Dates: start: 20130709, end: 20130709
  5. EXJADE [Concomitant]
     Active Substance: DEFERASIROX
     Route: 048
     Dates: start: 20140708, end: 20141028
  6. MIRCERA [Suspect]
     Active Substance: METHOXY POLYETHYLENE GLYCOL-EPOETIN BETA
     Route: 058
     Dates: start: 20131029, end: 20140218
  7. VOGLIBOSE [Concomitant]
     Active Substance: VOGLIBOSE
     Indication: PROPHYLAXIS
     Route: 048
     Dates: start: 20140415, end: 20151119
  8. MIRCERA [Suspect]
     Active Substance: METHOXY POLYETHYLENE GLYCOL-EPOETIN BETA
     Indication: NEPHROGENIC ANAEMIA
     Route: 058
     Dates: start: 20130611, end: 20130611
  9. MIRCERA [Suspect]
     Active Substance: METHOXY POLYETHYLENE GLYCOL-EPOETIN BETA
     Route: 058
     Dates: start: 20130806, end: 20131001
  10. MIRCERA [Suspect]
     Active Substance: METHOXY POLYETHYLENE GLYCOL-EPOETIN BETA
     Route: 058
     Dates: start: 20140318, end: 20140610

REACTIONS (4)
  - Respiratory failure [Unknown]
  - Aplasia pure red cell [Not Recovered/Not Resolved]
  - Renal failure [Unknown]
  - Cardiac failure [Unknown]

NARRATIVE: CASE EVENT DATE: 20130806
